FAERS Safety Report 7081214-1 (Version None)
Quarter: 2010Q4

REPORT INFORMATION
  Report Type: 
  Country: None (occurrence: None)
  Receive Date: 20101103
  Receipt Date: 20101028
  Transmission Date: 20110411
  Serious: Yes (Other)
  Sender: FDA-Public Use
  Company Number: US-ROCHE-737465

PATIENT
  Sex: Male

DRUGS (2)
  1. PEGASYS [Suspect]
     Route: 065
     Dates: start: 20050101, end: 20050101
  2. RIBAVIRIN [Suspect]
     Dosage: FORM: PILLS
     Route: 065
     Dates: start: 20050101, end: 20050101

REACTIONS (5)
  - GALLBLADDER OPERATION [None]
  - HALLUCINATION [None]
  - HEPATIC CIRRHOSIS [None]
  - PROCEDURAL PAIN [None]
  - WHITE BLOOD CELL COUNT ABNORMAL [None]
